FAERS Safety Report 11407278 (Version 1)
Quarter: 2015Q3

REPORT INFORMATION
  Report Type: Spontaneous
  Country: US (occurrence: US)
  Receive Date: 20150821
  Receipt Date: 20150821
  Transmission Date: 20151125
  Serious: No
  Sender: FDA-Public Use
  Company Number: US-NOVOPROD-430078

PATIENT
  Age: 66 Year
  Sex: Female

DRUGS (2)
  1. NOVOLOG [Concomitant]
     Active Substance: INSULIN ASPART
     Indication: TYPE 2 DIABETES MELLITUS
  2. VICTOZA [Suspect]
     Active Substance: LIRAGLUTIDE
     Indication: TYPE 2 DIABETES MELLITUS
     Route: 058

REACTIONS (2)
  - Injection site erythema [Recovered/Resolved]
  - Injection site pruritus [Recovered/Resolved]
